FAERS Safety Report 7640529-6 (Version None)
Quarter: 2011Q3

REPORT INFORMATION
  Report Type: 
  Country: None (occurrence: None)
  Receive Date: 20110728
  Receipt Date: 20110719
  Transmission Date: 20111222
  Serious: No
  Sender: FDA-Public Use
  Company Number: US-BIOGENIDEC-2011BI027025

PATIENT
  Age: 52 Year
  Sex: Female

DRUGS (3)
  1. AVONEX [Concomitant]
     Indication: MULTIPLE SCLEROSIS
     Route: 030
     Dates: start: 20100713, end: 20110101
  2. TYSABRI [Suspect]
     Indication: MULTIPLE SCLEROSIS
     Route: 042
     Dates: start: 20110630
  3. TYSABRI [Suspect]
     Route: 042
     Dates: start: 20060915, end: 20091105

REACTIONS (5)
  - MOTOR DYSFUNCTION [None]
  - FATIGUE [None]
  - GAIT DISTURBANCE [None]
  - FALL [None]
  - APHTHOUS STOMATITIS [None]
